FAERS Safety Report 23710654 (Version 1)
Quarter: 2024Q2

REPORT INFORMATION
  Report Type: Report from Study
  Country: CO (occurrence: CO)
  Receive Date: 20240405
  Receipt Date: 20240405
  Transmission Date: 20240716
  Serious: Yes (Hospitalization, Other)
  Sender: FDA-Public Use
  Company Number: CO-TAKEDA-2021TUS026059

PATIENT
  Age: 15 Year
  Sex: Female
  Weight: 60 kg

DRUGS (5)
  1. HUMAN IMMUNOGLOBULIN G\HYALURONIDASE RECOMBINANT HUMAN [Suspect]
     Active Substance: HUMAN IMMUNOGLOBULIN G\HYALURONIDASE (HUMAN RECOMBINANT)
     Indication: Primary immunodeficiency syndrome
     Dosage: 50 GRAM, Q2WEEKS
     Route: 058
  2. HUMAN IMMUNOGLOBULIN G\HYALURONIDASE RECOMBINANT HUMAN [Suspect]
     Active Substance: HUMAN IMMUNOGLOBULIN G\HYALURONIDASE (HUMAN RECOMBINANT)
     Dosage: 25 GRAM, Q2WEEKS
     Route: 058
  3. HUMAN IMMUNOGLOBULIN G\HYALURONIDASE RECOMBINANT HUMAN [Suspect]
     Active Substance: HUMAN IMMUNOGLOBULIN G\HYALURONIDASE (HUMAN RECOMBINANT)
     Dosage: 30 GRAM, Q2WEEKS
     Route: 058
  4. HUMAN IMMUNOGLOBULIN G\HYALURONIDASE RECOMBINANT HUMAN [Suspect]
     Active Substance: HUMAN IMMUNOGLOBULIN G\HYALURONIDASE (HUMAN RECOMBINANT)
     Dosage: 30 GRAM, Q3WEEKS
     Route: 058
  5. HUMAN IMMUNOGLOBULIN G\HYALURONIDASE RECOMBINANT HUMAN [Suspect]
     Active Substance: HUMAN IMMUNOGLOBULIN G\HYALURONIDASE (HUMAN RECOMBINANT)
     Dosage: 30 GRAM, 2/MONTH
     Route: 058

REACTIONS (27)
  - Cough [Unknown]
  - Oxygen saturation decreased [Unknown]
  - Malaise [Recovering/Resolving]
  - Pyrexia [Recovering/Resolving]
  - Weight increased [Unknown]
  - Pain [Recovering/Resolving]
  - Puncture site inflammation [Recovering/Resolving]
  - Puncture site erythema [Recovering/Resolving]
  - Depression [Unknown]
  - Frustration tolerance decreased [Unknown]
  - Insurance issue [Unknown]
  - Patient dissatisfaction with treatment [Unknown]
  - Crying [Unknown]
  - Anger [Unknown]
  - Defiant behaviour [Unknown]
  - Emotional disorder [Unknown]
  - Treatment noncompliance [Unknown]
  - Weight decreased [Unknown]
  - Anxiety [Unknown]
  - Insomnia [Unknown]
  - Rhinorrhoea [Unknown]
  - Dizziness [Recovering/Resolving]
  - Arthralgia [Unknown]
  - Headache [Recovering/Resolving]
  - Product availability issue [Unknown]
  - Product dose omission issue [Unknown]
  - Wrong dosage formulation [Unknown]

NARRATIVE: CASE EVENT DATE: 20210416
